FAERS Safety Report 20942570 (Version 1)
Quarter: 2022Q2

REPORT INFORMATION
  Report Type: Report from Study
  Country: DE (occurrence: DE)
  Receive Date: 20220610
  Receipt Date: 20220610
  Transmission Date: 20220720
  Serious: Yes (Life-Threatening, Other)
  Sender: FDA-Public Use
  Company Number: DE-BRISTOL-MYERS SQUIBB COMPANY-2022-029529

PATIENT
  Age: 85 Year
  Sex: Female
  Weight: 100 kg

DRUGS (25)
  1. AZACITIDINE [Suspect]
     Active Substance: AZACITIDINE
     Indication: Acute myeloid leukaemia
     Dosage: FOR 7 DAYS WITHIN THE FIRST 9 DAYS OF EACH 28-DAY CYCLE
     Route: 058
     Dates: start: 20220214
  2. AZACITIDINE [Suspect]
     Active Substance: AZACITIDINE
     Indication: Myelodysplastic syndrome
  3. LEMZOPARLIMAB [Suspect]
     Active Substance: LEMZOPARLIMAB
     Indication: Acute myeloid leukaemia
     Route: 042
     Dates: start: 20220221
  4. LEMZOPARLIMAB [Suspect]
     Active Substance: LEMZOPARLIMAB
     Indication: Atrial fibrillation
  5. VENETOCLAX [Suspect]
     Active Substance: VENETOCLAX
     Indication: Acute myeloid leukaemia
     Dosage: 100 MG,
     Route: 048
     Dates: start: 20220214, end: 20220214
  6. VENETOCLAX [Suspect]
     Active Substance: VENETOCLAX
     Dosage: 1 IN 1 D
     Route: 048
     Dates: start: 20220215, end: 20220215
  7. VENETOCLAX [Suspect]
     Active Substance: VENETOCLAX
     Dosage: 200 MG,1 IN 1 D
     Route: 048
     Dates: start: 20220216
  8. ACETAMINOPHEN [Concomitant]
     Active Substance: ACETAMINOPHEN
     Indication: Back pain
     Dosage: 1 IN 1 D
     Route: 048
  9. OXYCODONE [Concomitant]
     Active Substance: OXYCODONE
     Indication: Atrial fibrillation
     Dosage: 2 IN 1 D
     Route: 048
  10. AMITRIPTYLINE HYDROCHLORIDE [Concomitant]
     Active Substance: AMITRIPTYLINE HYDROCHLORIDE
     Indication: Back pain
     Dosage: 1 IN 1 D
     Route: 048
     Dates: start: 20220128, end: 20220225
  11. ENOXAPARIN SODIUM [Concomitant]
     Active Substance: ENOXAPARIN SODIUM
     Indication: Back pain
     Dosage: 1 AS REQUIRED
     Route: 048
     Dates: start: 20220221, end: 20220221
  12. ENOXAPARIN SODIUM [Concomitant]
     Active Substance: ENOXAPARIN SODIUM
     Dosage: 1 ONCE
     Route: 048
     Dates: start: 20220228, end: 20220228
  13. ENOXAPARIN SODIUM [Concomitant]
     Active Substance: ENOXAPARIN SODIUM
     Dosage: 1 ONCE
     Route: 048
  14. ACYCLOVIR [Concomitant]
     Active Substance: ACYCLOVIR
     Indication: Thrombosis prophylaxis
     Dosage: 1 IN 1 D
     Route: 058
  15. SODIUM PICOSULFAT [Concomitant]
     Indication: Infection prophylaxis
     Dosage: 3 IN 1 D
     Route: 048
     Dates: start: 20220201, end: 20220225
  16. LACTULOSE [Concomitant]
     Active Substance: LACTULOSE
     Indication: Constipation
     Dosage: 1 AS REQUIRED
     Route: 048
  17. DEXAMETHASONE [Concomitant]
     Active Substance: DEXAMETHASONE
     Indication: Constipation
     Dosage: 1 AS REQUIRED
     Route: 048
  18. METAMIZOL [Concomitant]
     Active Substance: METAMIZOLE SODIUM
     Indication: Premedication
     Dosage: 1 ONCE
     Route: 048
     Dates: start: 20220221, end: 20220221
  19. METAMIZOL [Concomitant]
     Active Substance: METAMIZOLE SODIUM
     Dosage: 1 ONCE
     Route: 048
     Dates: start: 20220228, end: 20220228
  20. AMLODIPINE BESYLATE [Concomitant]
     Active Substance: AMLODIPINE BESYLATE
     Indication: Back pain
     Dosage: 1 ONCE
     Route: 048
     Dates: start: 20220217, end: 20220217
  21. AMLODIPINE BESYLATE [Concomitant]
     Active Substance: AMLODIPINE BESYLATE
     Dosage: 1 ONCE
     Route: 048
     Dates: start: 20220224, end: 20220224
  22. METOPROLOL [Concomitant]
     Active Substance: METOPROLOL
     Indication: Infection prophylaxis
     Dosage: 1 ONCE
     Dates: start: 20220221, end: 20220221
  23. METOPROLOL [Concomitant]
     Active Substance: METOPROLOL
     Indication: Nausea
     Dosage: 1 AS REQUIRED
     Dates: start: 20220228, end: 20220228
  24. METOPROLOL [Concomitant]
     Active Substance: METOPROLOL
     Dosage: 300 MG,1 AS REQUIRED
     Dates: start: 20220211, end: 20220222
  25. METOPROLOL [Concomitant]
     Active Substance: METOPROLOL
     Dosage: 2 IN 1 D
     Dates: start: 20220201

REACTIONS (2)
  - Febrile neutropenia [Recovered/Resolved]
  - Pneumonia [Recovered/Resolved]

NARRATIVE: CASE EVENT DATE: 20220224
